FAERS Safety Report 19100066 (Version 3)
Quarter: 2021Q3

REPORT INFORMATION
  Report Type: Spontaneous
  Country: JP (occurrence: JP)
  Receive Date: 20210407
  Receipt Date: 20210715
  Transmission Date: 20211014
  Serious: Yes (Hospitalization)
  Sender: FDA-Public Use
  Company Number: JP-BRISTOL-MYERS SQUIBB COMPANY-BMS-2021-033544

PATIENT
  Age: 67 Year
  Sex: Female

DRUGS (4)
  1. VERZENIO [Interacting]
     Active Substance: ABEMACICLIB
     Indication: BREAST CANCER
     Dosage: 150 MILLIGRAM
     Route: 048
     Dates: start: 20210222, end: 20210308
  2. OPDIVO [Suspect]
     Active Substance: NIVOLUMAB
     Indication: NON-SMALL CELL LUNG CANCER RECURRENT
     Dosage: 240 MILLIGRAM, Q2WK
     Route: 041
     Dates: start: 20191129, end: 20210122
  3. FULVESTRANT. [Concomitant]
     Active Substance: FULVESTRANT
     Indication: BREAST CANCER
     Dosage: 500 MILLIGRAM
     Route: 030
     Dates: start: 20210222, end: 20210308
  4. CLARITHROMYCIN. [Interacting]
     Active Substance: CLARITHROMYCIN
     Indication: PRODUCT USED FOR UNKNOWN INDICATION
     Dosage: 200 MILLIGRAM, Q12H
     Route: 048
     Dates: start: 20210305, end: 202103

REACTIONS (2)
  - Platelet count decreased [Recovering/Resolving]
  - Drug interaction [Unknown]

NARRATIVE: CASE EVENT DATE: 202102
